FAERS Safety Report 11421840 (Version 1)
Quarter: 2015Q3

REPORT INFORMATION
  Report Type: Report from Study
  Country: US (occurrence: US)
  Receive Date: 20150827
  Receipt Date: 20150827
  Transmission Date: 20151125
  Serious: Yes (Hospitalization, Other)
  Sender: FDA-Public Use
  Company Number: US-AMGEN-USASP2015086784

PATIENT
  Age: 60 Year
  Sex: Male

DRUGS (2)
  1. METHOTREXATE [Concomitant]
     Active Substance: METHOTREXATE
     Dosage: UNK
  2. ENBREL [Suspect]
     Active Substance: ETANERCEPT
     Indication: PRODUCT USED FOR UNKNOWN INDICATION
     Dosage: UNK
     Route: 065

REACTIONS (12)
  - Pain in extremity [Unknown]
  - Hepatic cirrhosis [Unknown]
  - Pneumonia [Unknown]
  - Swelling [Unknown]
  - Psoriasis [Unknown]
  - Mental disorder [Unknown]
  - Disturbance in attention [Unknown]
  - Drug effect delayed [Unknown]
  - Blood iron abnormal [Unknown]
  - Liver disorder [Unknown]
  - Haemochromatosis [Unknown]
  - Malaise [Unknown]
